FAERS Safety Report 20548547 (Version 2)
Quarter: 2022Q1

REPORT INFORMATION
  Report Type: Spontaneous
  Country: US (occurrence: US)
  Receive Date: 20220303
  Receipt Date: 20220321
  Transmission Date: 20220424
  Serious: Yes (Life-Threatening, Hospitalization)
  Sender: FDA-Public Use
  Company Number: US-TEVA-2022-US-2011675

PATIENT
  Age: 56 Year
  Sex: Male

DRUGS (4)
  1. EPOPROSTENOL [Suspect]
     Active Substance: EPOPROSTENOL
     Indication: Hypoxia
     Route: 055
  2. ALTEPLASE [Suspect]
     Active Substance: ALTEPLASE
     Indication: Right ventricular dysfunction
     Dosage: WITHOUT BOLUS DOSE
     Route: 065
  3. REMDESIVIR [Concomitant]
     Active Substance: REMDESIVIR
     Indication: COVID-19 pneumonia
     Route: 065
  4. NITROGLYCERIN [Concomitant]
     Active Substance: NITROGLYCERIN
     Indication: Right ventricular dysfunction
     Dosage: VIA INLINE CLOSED-CIRCUIT NEBULIZER OVER THE NEXT 60 MIN.
     Route: 055

REACTIONS (1)
  - Drug ineffective [Unknown]
